FAERS Safety Report 8482034-3 (Version None)
Quarter: 2012Q3

REPORT INFORMATION
  Report Type: 
  Country: None (occurrence: None)
  Receive Date: 20120702
  Receipt Date: 20120627
  Transmission Date: 20120928
  Serious: Yes (Hospitalization, Other)
  Sender: FDA-Public Use
  Company Number: PHHY2012BR029117

PATIENT
  Sex: Female
  Weight: 72 kg

DRUGS (1)
  1. DIOVAN HCT [Suspect]
     Indication: BLOOD PRESSURE
     Dosage: 1 DF (VALS 320 MG, HYDR 12.5 MG), DAILY
     Route: 048
     Dates: start: 20110701

REACTIONS (3)
  - DIVERTICULITIS [None]
  - INFREQUENT BOWEL MOVEMENTS [None]
  - BACK PAIN [None]
